FAERS Safety Report 5155387-1 (Version None)
Quarter: 2006Q4

REPORT INFORMATION
  Report Type: 
  Country: None (occurrence: None)
  Receive Date: 20061121
  Receipt Date: 20061025
  Transmission Date: 20070319
  Serious: Yes (Other)
  Sender: FDA-Public Use
  Company Number: AU-SANOFI-SYNTHELABO-A01200609163

PATIENT
  Sex: Male

DRUGS (8)
  1. ESOMEPRAXOL [Concomitant]
     Dosage: UNK
     Route: 065
  2. CITALOPRAM HYDROBROMIDE [Concomitant]
     Dosage: 20 MG
     Route: 065
  3. PLAVIX [Concomitant]
     Dosage: 75 MG
     Route: 065
  4. FUROSEMIDE [Concomitant]
     Dosage: 80 MG
     Route: 048
  5. AVAPRO [Concomitant]
     Dosage: 300 MG
     Route: 048
  6. METROL [Concomitant]
     Dosage: 100 MG
     Route: 065
  7. VERAPAMIL [Concomitant]
     Dosage: 240 MG
     Route: 065
  8. STILNOX CR [Suspect]
     Route: 048
     Dates: start: 20061019

REACTIONS (12)
  - AGITATION [None]
  - ANGIONEUROTIC OEDEMA [None]
  - ANXIETY [None]
  - CONFUSIONAL STATE [None]
  - DEPRESSED LEVEL OF CONSCIOUSNESS [None]
  - DIZZINESS [None]
  - DRUG INEFFECTIVE [None]
  - LIP SWELLING [None]
  - MALAISE [None]
  - SOMNOLENCE [None]
  - SWELLING FACE [None]
  - SWOLLEN TONGUE [None]
